FAERS Safety Report 16113095 (Version 1)
Quarter: 2019Q1

REPORT INFORMATION
  Report Type: Report from Study
  Country: US (occurrence: US)
  Receive Date: 20190325
  Receipt Date: 20190325
  Transmission Date: 20190418
  Serious: Yes (Hospitalization, Other)
  Sender: FDA-Public Use
  Company Number: US-SA-2019SA078440

PATIENT
  Age: 76 Year
  Sex: Female

DRUGS (1)
  1. INSULIN GLARGINE [Suspect]
     Active Substance: INSULIN GLARGINE
     Indication: DIABETES MELLITUS
     Dosage: 24 U, QD (AT NIGHT)
     Route: 058

REACTIONS (7)
  - Renal disorder [Not Recovered/Not Resolved]
  - Scab [Not Recovered/Not Resolved]
  - Blood glucose abnormal [Not Recovered/Not Resolved]
  - Anal incontinence [Unknown]
  - Product dose omission [Unknown]
  - Inability to afford medication [Unknown]
  - Staphylococcal infection [Not Recovered/Not Resolved]
